FAERS Safety Report 10040985 (Version 1)
Quarter: 2014Q1

REPORT INFORMATION
  Report Type: Spontaneous
  Country: US (occurrence: US)
  Receive Date: 20140327
  Receipt Date: 20140327
  Transmission Date: 20141002
  Serious: No
  Sender: FDA-Public Use
  Company Number: US-ROXANE LABORATORIES, INC.-2014-RO-00474RO

PATIENT
  Sex: Female

DRUGS (3)
  1. FLUTICASONE [Suspect]
     Indication: MULTIPLE ALLERGIES
     Route: 055
  2. UNSPECIFIED HEART MEDICATIONS [Concomitant]
     Indication: ATRIAL FIBRILLATION
     Route: 065
  3. UNSPECIFIED HEART MEDICATIONS [Concomitant]
     Indication: HEART VALVE INCOMPETENCE

REACTIONS (1)
  - Nasal discomfort [Not Recovered/Not Resolved]
